FAERS Safety Report 8007783 (Version 4)
Quarter: 2013Q2

REPORT INFORMATION
  Report Type: Report from Study
  Country: US (occurrence: US)
  Receive Date: 20110624
  Receipt Date: 20130531
  Transmission Date: 20140414
  Serious: Yes (Death)
  Sender: FDA-Public Use
  Company Number: US-PFIZER INC-2011134474

PATIENT
  Age: 84 Year
  Sex: Male
  Weight: 75.28 kg

DRUGS (10)
  1. CELECOXIB [Suspect]
     Indication: OSTEOARTHRITIS
     Dosage: 100 MG, 2X/DAY
     Dates: start: 20071201, end: 20080808
  2. NEXIUM [Concomitant]
     Dosage: 20 MG, UNK
  3. ACETYLSALICYLIC ACID [Concomitant]
     Dosage: 162 MG, 1X/DAY
     Dates: start: 2003
  4. RANITIDINE [Concomitant]
     Dosage: 75 MG, 1X/DAY
     Dates: start: 2003
  5. MULTIVITAMINS [Concomitant]
     Dosage: 1 DF (TABLET), 1X/DAY
     Dates: start: 1987
  6. CALCIUM [Concomitant]
     Dosage: 1200 MG, 1X/DAY
     Dates: start: 2001
  7. VITAMIN E [Concomitant]
     Dosage: 400 MG, 1X/DAY
     Dates: start: 2003
  8. VITAMIN C [Concomitant]
     Dosage: 1000 MG, 1X/DAY
     Dates: start: 2003
  9. TYLENOL [Concomitant]
     Dosage: 500 MG, 1X/DAY
     Dates: start: 2004
  10. VICODIN [Concomitant]
     Dosage: HYDROCODONE 10MG/APAP AS NEEDED
     Dates: start: 2004

REACTIONS (1)
  - Death [Fatal]
